FAERS Safety Report 16169290 (Version 1)
Quarter: 2019Q2

REPORT INFORMATION
  Report Type: Spontaneous
  Country: US (occurrence: US)
  Receive Date: 20190408
  Receipt Date: 20190408
  Transmission Date: 20190711
  Serious: Yes (Other)
  Sender: FDA-Public Use
  Company Number: US-TARO-2019TAR00248

PATIENT
  Sex: Male

DRUGS (1)
  1. AMIODARONE HCL TABLET 200 MG [Suspect]
     Active Substance: AMIODARONE HYDROCHLORIDE
     Indication: ATRIAL FIBRILLATION
     Dosage: UNK
     Route: 048
     Dates: start: 201308

REACTIONS (15)
  - Optic ischaemic neuropathy [Unknown]
  - Fatigue [Unknown]
  - Blindness [Unknown]
  - Wheezing [Unknown]
  - Cough [Unknown]
  - Restlessness [Unknown]
  - Irritability [Unknown]
  - Cataract [Recovered/Resolved]
  - Disturbance in attention [Unknown]
  - Depression [Unknown]
  - Pulmonary fibrosis [Unknown]
  - Dyspnoea [Unknown]
  - Asthenia [Unknown]
  - Off label use [Unknown]
  - Nervousness [Unknown]

NARRATIVE: CASE EVENT DATE: 201308
